FAERS Safety Report 6657517-9 (Version None)
Quarter: 2010Q1

REPORT INFORMATION
  Report Type: 
  Country: None (occurrence: None)
  Receive Date: 20100330
  Receipt Date: 20100319
  Transmission Date: 20100710
  Serious: No
  Sender: FDA-Public Use
  Company Number: US-MYLANLABS-2009S1020360

PATIENT
  Age: 50 Year
  Sex: Female
  Weight: 87.09 kg

DRUGS (1)
  1. LEVOTHYROXINE SODIUM [Suspect]
     Indication: THYROIDECTOMY
     Route: 048
     Dates: start: 20070501, end: 20091001

REACTIONS (34)
  - AGGRESSION [None]
  - ALLERGIC RESPIRATORY SYMPTOM [None]
  - ANXIETY [None]
  - ARTHRALGIA [None]
  - BRONCHIAL HYPERREACTIVITY [None]
  - CARDIAC DISORDER [None]
  - CHOKING SENSATION [None]
  - COUGH [None]
  - DECREASED APPETITE [None]
  - DEPRESSION [None]
  - DISTURBANCE IN ATTENTION [None]
  - DYSPHAGIA [None]
  - DYSPHONIA [None]
  - DYSPNOEA [None]
  - EYE IRRITATION [None]
  - FALL [None]
  - FATIGUE [None]
  - FEELING ABNORMAL [None]
  - HEADACHE [None]
  - HYPERTONIA [None]
  - HYPOACUSIS [None]
  - INSOMNIA [None]
  - IRRITABILITY [None]
  - LABORATORY TEST ABNORMAL [None]
  - MALAISE [None]
  - MUSCLE TIGHTNESS [None]
  - OBSTRUCTIVE AIRWAYS DISORDER [None]
  - OESOPHAGEAL DISORDER [None]
  - PALPITATIONS [None]
  - SCIATIC NERVE INJURY [None]
  - SYNCOPE [None]
  - VISION BLURRED [None]
  - VISUAL ACUITY REDUCED [None]
  - WEIGHT DECREASED [None]
